FAERS Safety Report 12109498 (Version 2)
Quarter: 2016Q2

REPORT INFORMATION
  Report Type: Spontaneous
  Country: DE (occurrence: DE)
  Receive Date: 20160224
  Receipt Date: 20160405
  Transmission Date: 20160815
  Serious: Yes (Other)
  Sender: FDA-Public Use
  Company Number: DE-BAYER-2016-036331

PATIENT
  Sex: Female
  Weight: 54 kg

DRUGS (1)
  1. ULTRAVIST [Suspect]
     Active Substance: IOPROMIDE
     Indication: DIAGNOSTIC PROCEDURE
     Dosage: 100 ML, UNK

REACTIONS (3)
  - Oedema mucosal [Recovered/Resolved]
  - Intraocular pressure increased [None]
  - Nausea [Recovered/Resolved]
